FAERS Safety Report 6655676-5 (Version None)
Quarter: 2010Q1

REPORT INFORMATION
  Report Type: 
  Country: None (occurrence: None)
  Receive Date: 20100326
  Receipt Date: 20100326
  Transmission Date: 20100710
  Serious: Yes (Death)
  Sender: FDA-Public Use
  Company Number: None

PATIENT
  Age: 78 Year
  Sex: Female

DRUGS (11)
  1. REVLIMID [Suspect]
     Indication: MULTIPLE MYELOMA
     Dosage: REVLIMID 10 MG EVERY OTHER DAY ORAL
     Route: 048
     Dates: start: 20080503, end: 20090629
  2. WARFARIN SODIUM [Concomitant]
  3. DIGOXIN [Concomitant]
  4. COZAAR [Concomitant]
  5. FLUROXETINE [Concomitant]
  6. FUROSEMIDE [Concomitant]
  7. ACYCLOVIR [Concomitant]
  8. BACTRIM [Concomitant]
  9. MORPHINE [Concomitant]
  10. ACETAMINOPHEN [Concomitant]
  11. LORAZEPAM [Concomitant]

REACTIONS (2)
  - COGNITIVE DISORDER [None]
  - GENERAL PHYSICAL HEALTH DETERIORATION [None]
